FAERS Safety Report 9850949 (Version 1)
Quarter: 2014Q1

REPORT INFORMATION
  Report Type: Spontaneous
  Country: AU (occurrence: AU)
  Receive Date: 20140128
  Receipt Date: 20140128
  Transmission Date: 20141002
  Serious: Yes (Other)
  Sender: FDA-Public Use
  Company Number: AU-MYLANLABS-2014S1000913

PATIENT
  Age: 60 Year
  Sex: Female

DRUGS (3)
  1. DOXYLIN [Suspect]
     Indication: INFECTION PROPHYLAXIS
     Dates: start: 20140109
  2. THYROXINE [Concomitant]
     Indication: HYPOTHYROIDISM
  3. THYROXINE [Concomitant]
     Indication: THYROID CANCER

REACTIONS (5)
  - Frequent bowel movements [Not Recovered/Not Resolved]
  - Abdominal distension [Not Recovered/Not Resolved]
  - Muscle spasms [Not Recovered/Not Resolved]
  - Hyperhidrosis [Not Recovered/Not Resolved]
  - Nausea [Not Recovered/Not Resolved]
